FAERS Safety Report 9416126 (Version 3)
Quarter: 2014Q2

REPORT INFORMATION
  Report Type: Spontaneous
  Country: US (occurrence: None)
  Receive Date: 20130717
  Receipt Date: 20140606
  Transmission Date: 20141212
  Serious: Yes (Hospitalization, Other)
  Sender: FDA-Public Use
  Company Number: 1795738

PATIENT
  Age: 51 Year
  Sex: Female

DRUGS (1)
  1. SODIUM CHLORIDE [Suspect]
     Indication: THERAPEUTIC PROCEDURE
     Route: 050

REACTIONS (6)
  - Serratia infection [None]
  - Product contamination microbial [None]
  - Product quality issue [None]
  - Wrong technique in drug usage process [None]
  - Incorrect product storage [None]
  - Lung infection [None]
